FAERS Safety Report 4948917-3 (Version None)
Quarter: 2006Q1

REPORT INFORMATION
  Report Type: 
  Country: None (occurrence: None)
  Receive Date: 20060321
  Receipt Date: 20060224
  Transmission Date: 20060701
  Serious: Yes (Hospitalization)
  Sender: FDA-Public Use
  Company Number: PHHO2006JP03506

PATIENT
  Age: 78 Year
  Sex: Female
  Weight: 54 kg

DRUGS (3)
  1. NATEGLINIDE [Concomitant]
     Indication: DIABETES MELLITUS NON-INSULIN-DEPENDENT
     Dosage: 120 MG, UNK
     Route: 048
     Dates: end: 20060219
  2. GLUCOSE [Concomitant]
     Indication: HYPOGLYCAEMIA
     Dosage: 10 G, UNK
     Route: 048
     Dates: start: 20060216, end: 20060216
  3. EXJADE [Suspect]
     Indication: HAEMOSIDEROSIS
     Dosage: 1625 MG, UNK
     Route: 048
     Dates: start: 20060207, end: 20060220

REACTIONS (7)
  - DECREASED APPETITE [None]
  - DIARRHOEA [None]
  - DUODENAL ULCER [None]
  - DYSPEPSIA [None]
  - NAUSEA [None]
  - PYREXIA [None]
  - VIRAL INFECTION [None]
